FAERS Safety Report 13754330 (Version 1)
Quarter: 2017Q3

REPORT INFORMATION
  Report Type: Spontaneous
  Country: US (occurrence: US)
  Receive Date: 20170714
  Receipt Date: 20170714
  Transmission Date: 20171127
  Serious: Yes (Hospitalization, Other)
  Sender: FDA-Public Use
  Company Number: None

PATIENT
  Age: 49 Year
  Sex: Female
  Weight: 68.55 kg

DRUGS (8)
  1. PANTOPRAZOLE SOD [Concomitant]
     Active Substance: PANTOPRAZOLE SODIUM
  2. LOSARTAN-HCTZ [Concomitant]
     Active Substance: HYDROCHLOROTHIAZIDE\LOSARTAN
  3. GABAPENTIN. [Concomitant]
     Active Substance: GABAPENTIN
  4. IRON [Concomitant]
     Active Substance: IRON
  5. HYDROCODONE BITARTRATE AND ACETAMINOPHEN [Concomitant]
     Active Substance: ACETAMINOPHEN\HYDROCODONE BITARTRATE
  6. CYCLOBENZAPRINE. [Concomitant]
     Active Substance: CYCLOBENZAPRINE
  7. DIAZEPAM. [Concomitant]
     Active Substance: DIAZEPAM
  8. TRAMADOL HCL 50 MG [Suspect]
     Active Substance: TRAMADOL HYDROCHLORIDE
     Indication: ARTHRITIS
     Dosage: ?          QUANTITY:IDIOM;?
     Route: 048
     Dates: start: 20141021, end: 20150910

REACTIONS (1)
  - Ulcer haemorrhage [None]

NARRATIVE: CASE EVENT DATE: 20150910
